FAERS Safety Report 23685036 (Version 2)
Quarter: 2024Q2

REPORT INFORMATION
  Report Type: Report from Study
  Country: US (occurrence: US)
  Receive Date: 20240328
  Receipt Date: 20240401
  Transmission Date: 20240716
  Serious: Yes (Other)
  Sender: FDA-Public Use
  Company Number: US-ABBVIE-5694764

PATIENT
  Sex: Female

DRUGS (1)
  1. HUMIRA [Suspect]
     Active Substance: ADALIMUMAB
     Indication: Product used for unknown indication
     Route: 058

REACTIONS (8)
  - Cataract [Unknown]
  - Postoperative adhesion [Unknown]
  - Eye pain [Unknown]
  - Lacrimation increased [Unknown]
  - Injection site pain [Unknown]
  - Multiple allergies [Unknown]
  - Arthropod bite [Unknown]
  - Photophobia [Unknown]

NARRATIVE: CASE EVENT DATE: 20210101
